FAERS Safety Report 17259672 (Version 1)
Quarter: 2020Q1

REPORT INFORMATION
  Report Type: Report from Study
  Country: US (occurrence: US)
  Receive Date: 20200110
  Receipt Date: 20200110
  Transmission Date: 20200409
  Serious: Yes (Hospitalization)
  Sender: FDA-Public Use
  Company Number: US-GILEAD-2019-0443309

PATIENT
  Age: 48 Year
  Sex: Male

DRUGS (1)
  1. AZTREONAM LYSINE [Suspect]
     Active Substance: AZTREONAM LYSINE
     Indication: CYSTIC FIBROSIS
     Dosage: THREE TIMES A DAY FOR 28 DAYS THEN OFF FOR 28 DAYS
     Route: 055
     Dates: start: 20180327

REACTIONS (2)
  - Dyspnoea [Not Recovered/Not Resolved]
  - Hiatus hernia [Unknown]
